FAERS Safety Report 21212796 (Version 3)
Quarter: 2022Q3

REPORT INFORMATION
  Report Type: Spontaneous
  Country: LB (occurrence: LB)
  Receive Date: 20220815
  Receipt Date: 20220826
  Transmission Date: 20221026
  Serious: Yes (Death, Hospitalization, Other)
  Sender: FDA-Public Use
  Company Number: LB-ASTELLAS-2022US028532

PATIENT
  Sex: Male

DRUGS (17)
  1. XTANDI [Suspect]
     Active Substance: ENZALUTAMIDE
     Indication: Prostate cancer
     Dosage: 2 DF, ONCE DAILY (2 CAPSULES ON A DAILY BASIS IN THE AFTERNOON, AS PRESCRIBED BY PHYSICIAN)
     Route: 048
     Dates: start: 202004, end: 20220803
  2. VASTAREL [Concomitant]
     Active Substance: TRIMETAZIDINE DIHYDROCHLORIDE
     Indication: Product used for unknown indication
     Dosage: 1 DF (CAPSULE) , TWICE DAILY (MORNING AND NIGHT)
     Route: 065
  3. NEBIVOLOL [Concomitant]
     Active Substance: NEBIVOLOL
     Indication: Product used for unknown indication
     Dosage: 0.5 DF, ONCE DAILY (HALF CAPSULE) (MORNING)
     Route: 065
  4. CINITREX [Concomitant]
     Indication: Product used for unknown indication
     Dosage: UNK UNK, TWICE DAILY (2 CAPSULES IN MORNING AND 1 CAPSULE AT NIGHT)
     Route: 065
  5. FOLIC ACID [Concomitant]
     Active Substance: FOLIC ACID
     Indication: Product used for unknown indication
     Dosage: 1 DOSAGE FORM, ONCE DAILY (MORNING)
     Route: 065
  6. FUROSEMIDE [Concomitant]
     Active Substance: FUROSEMIDE
     Indication: Product used for unknown indication
     Dosage: 2 DF, TWICE DAILY (MORNING AND NIGHT)
     Route: 065
  7. GASTRISEC [Concomitant]
     Indication: Product used for unknown indication
     Dosage: 1 DF, ONCE DAILY (MORNING)
     Route: 065
  8. LAMICTAL [Concomitant]
     Active Substance: LAMOTRIGINE
     Indication: Product used for unknown indication
     Dosage: UNK UNK, TWICE DAILY (HALF CAPSULE) ((MORNING AND NIGHT)
     Route: 065
  9. CALTRATE WITH VITAMIN D [Concomitant]
     Active Substance: CALCIUM CARBONATE\CHOLECALCIFEROL
     Indication: Product used for unknown indication
     Dosage: 1 DF, TWICE DAILY (MORNING AND AFTERNOON)
     Route: 065
  10. RIFAXIMIN [Concomitant]
     Active Substance: RIFAXIMIN
     Indication: Product used for unknown indication
     Dosage: 1 DOSAGE FORM, TWICE DAILY  (MORNING AND NIGHT)
     Route: 065
  11. GERIMAX [Concomitant]
     Indication: Product used for unknown indication
     Dosage: 1 DF, ONCE DAILY (AFTERNOON)
     Route: 065
  12. Hemax [Concomitant]
     Indication: Product used for unknown indication
     Dosage: UNK, TWICE WEEKLY (ON MONDAY AND THURSDAY ONLY) (AFTERNOON)
     Route: 065
  13. AMLODIPINE BESYLATE [Concomitant]
     Active Substance: AMLODIPINE BESYLATE
     Indication: Product used for unknown indication
     Dosage: 1 DF, ONCE DAILY (NIGHT)
     Route: 065
  14. SINTROM [Concomitant]
     Active Substance: ACENOCOUMAROL
     Indication: Product used for unknown indication
     Dosage: UNK UNK, ONCE DAILY (VARIABLE) (NIGHT)
     Route: 065
  15. ALLOPURINOL [Concomitant]
     Active Substance: ALLOPURINOL
     Indication: Product used for unknown indication
     Dosage: 1 DF, THRICE WEEKLY ((MONDAY, WEDNESDAY AND FRIDAY) (NIGHT)
     Route: 065
  16. ALFACALCIDOL [Concomitant]
     Active Substance: ALFACALCIDOL
     Indication: Product used for unknown indication
     Dosage: 0.5 DF, THRICE WEEKLY (TUESDAY, THURSDAY AND SUNDAY) (IN MORNING)
     Route: 065
  17. ISOSORBIDE MONONITRATE [Concomitant]
     Active Substance: ISOSORBIDE MONONITRATE
     Indication: Product used for unknown indication
     Dosage: 1 DF, ONCE DAILY (NIGHT)
     Route: 065

REACTIONS (4)
  - Cardiac arrest [Fatal]
  - COVID-19 [Recovered/Resolved]
  - Off label use [Unknown]
  - Underdose [Unknown]

NARRATIVE: CASE EVENT DATE: 20200401
